FAERS Safety Report 4526619-5 (Version None)
Quarter: 2004Q4

REPORT INFORMATION
  Report Type: 
  Country: None (occurrence: None)
  Receive Date: 20041213
  Receipt Date: 20041129
  Transmission Date: 20050328
  Serious: Yes (Other)
  Sender: FDA-Public Use
  Company Number: 2004096592

PATIENT
  Age: 75 Year
  Sex: Female
  Weight: 74.8435 kg

DRUGS (14)
  1. BENADRYL [Suspect]
     Indication: URTICARIA
     Dosage: 1 SOFIGEL Q 4-6H, ORAL
     Route: 048
     Dates: start: 20041025, end: 20041001
  2. BENADRYL ITCH STOPPING SPRAY (DIPHENHYDRAMINE, ZINC ACETATE) [Suspect]
     Indication: URTICARIA
     Dosage: UNSPECIFIED, TOPICAL
     Route: 061
     Dates: start: 20041027
  3. DRUG, UNSPECIFIED [Concomitant]
  4. LEVOTHYROXINE SODIUM [Concomitant]
  5. NAPROXEN [Concomitant]
  6. RALOXIFENE HCL [Concomitant]
  7. PRINZIDE [Concomitant]
  8. TRIAMCINOLONE ACETONIDE [Concomitant]
  9. DESLORATADINE [Concomitant]
  10. AZELASTINE HCL [Concomitant]
  11. SALMETEROL XINAFOATE [Concomitant]
  12. ONE A DAY PLUS IRON (FERROUS FUMARATE, VITAMINS NOS) [Concomitant]
  13. OSTEO BI-FLEX (CHONDROITIN SULFATE, GLUCOSAMINE HYDROCHLORIDE) [Concomitant]
  14. ACETYLSALICYLIC ACID [Concomitant]

REACTIONS (2)
  - FACE OEDEMA [None]
  - URTICARIA GENERALISED [None]
